FAERS Safety Report 23929657 (Version 1)
Quarter: 2024Q2

REPORT INFORMATION
  Report Type: Spontaneous
  Country: US (occurrence: US)
  Receive Date: 20240601
  Receipt Date: 20240601
  Transmission Date: 20240716
  Serious: No
  Sender: FDA-Public Use
  Company Number: US-RADIUS HEALTH INC.-2024US002853

PATIENT
  Sex: Female

DRUGS (1)
  1. TYMLOS [Suspect]
     Active Substance: ABALOPARATIDE
     Indication: Senile osteoporosis
     Dosage: 80 MICROGRAM, QD
     Route: 058

REACTIONS (7)
  - Pain in jaw [Unknown]
  - Dysgeusia [Unknown]
  - Chest discomfort [Unknown]
  - Arthralgia [Unknown]
  - Headache [Unknown]
  - Rash [Unknown]
  - Palpitations [Unknown]
